FAERS Safety Report 4284442-3 (Version None)
Quarter: 2004Q1

REPORT INFORMATION
  Report Type: 
  Country: None (occurrence: None)
  Receive Date: 20040130
  Receipt Date: 20040115
  Transmission Date: 20041129
  Serious: Yes (Hospitalization)
  Sender: FDA-Public Use
  Company Number: 2004194637JP

PATIENT
  Age: 41 Year
  Sex: Male

DRUGS (1)
  1. SULFASALAZINE [Suspect]
     Indication: INTESTINAL ULCER
     Dosage: ORAL
     Route: 048
     Dates: start: 19971101

REACTIONS (7)
  - HEPATITIS [None]
  - INTESTINAL HAEMORRHAGE [None]
  - POST PROCEDURAL HAEMORRHAGE [None]
  - POSTOPERATIVE FEVER [None]
  - PYREXIA [None]
  - RASH [None]
  - SHOCK [None]
